FAERS Safety Report 4777243-0 (Version None)
Quarter: 2005Q3

REPORT INFORMATION
  Report Type: 
  Country: None (occurrence: None)
  Receive Date: 20050923
  Receipt Date: 20050802
  Transmission Date: 20060218
  Serious: Yes (Other)
  Sender: FDA-Public Use
  Company Number: PHFR2005GB02659

PATIENT
  Age: 39 Year
  Sex: Male

DRUGS (6)
  1. CLOZARIL [Suspect]
     Indication: SCHIZOPHRENIA
     Dosage: 300MG/DAY
     Route: 048
     Dates: start: 20041129
  2. DEPAKOTE [Concomitant]
     Indication: SCHIZOAFFECTIVE DISORDER
     Dosage: 1500MG/DAY
     Route: 048
  3. CITALOPRAM [Concomitant]
     Indication: SCHIZOAFFECTIVE DISORDER
     Dosage: 20MG/DAY
     Route: 048
  4. AMISULPRIDE [Concomitant]
     Indication: SCHIZOAFFECTIVE DISORDER
     Dosage: 1200MG/DAY
     Route: 048
  5. AMISULPRIDE [Concomitant]
     Route: 048
  6. HYOSCINE HBR HYT [Concomitant]
     Dosage: 300UG/DAY
     Route: 048

REACTIONS (6)
  - CATECHOLAMINES URINE INCREASED [None]
  - HYPERTENSION [None]
  - LIPIDS INCREASED [None]
  - MALAISE [None]
  - PSEUDOPHAEOCHROMOCYTOMA [None]
  - WEIGHT INCREASED [None]
